FAERS Safety Report 10312655 (Version 1)
Quarter: 2014Q3

REPORT INFORMATION
  Report Type: Spontaneous
  Country: US (occurrence: None)
  Receive Date: 20140716
  Receipt Date: 20140716
  Transmission Date: 20150326
  Serious: Yes (Hospitalization, Other)
  Sender: FDA-Public Use
  Company Number: None

PATIENT
  Age: 58 Year
  Sex: Male
  Weight: 71.67 kg

DRUGS (1)
  1. CDBCL-A CREAM DICLOFENAC/ BACLOFEN/ CYCLOBENZAPRINE/LIDOCAINE [Suspect]
     Active Substance: BACLOFEN\CYCLOBENZAPRINE\DICLOFENAC\LIDOCAINE
     Indication: EPICONDYLITIS
     Dosage: 1-2 GRAMS?FOUR TIMES DAILY?APPLIED TO A SURFACE USUALLY THE SKIN
     Route: 061
     Dates: start: 20140707, end: 20140708

REACTIONS (3)
  - Tachycardia [None]
  - Heart rate irregular [None]
  - Heart rate decreased [None]

NARRATIVE: CASE EVENT DATE: 20140708
